FAERS Safety Report 9178278 (Version 2)
Quarter: 2013Q2

REPORT INFORMATION
  Report Type: Spontaneous
  Country: US (occurrence: US)
  Receive Date: 20130321
  Receipt Date: 20130430
  Transmission Date: 20140414
  Serious: Yes (Hospitalization)
  Sender: FDA-Public Use
  Company Number: US-BRISTOL-MYERS SQUIBB COMPANY-17473406

PATIENT
  Age: 56 Year
  Sex: Male

DRUGS (4)
  1. ORENCIA [Suspect]
     Indication: RHEUMATOID ARTHRITIS
     Dosage: LAST DOSE:11FEB13
     Route: 042
     Dates: start: 20090922
  2. CAFFEINE [Suspect]
  3. METHOTREXATE [Concomitant]
  4. MS CONTIN [Concomitant]

REACTIONS (2)
  - Atrial flutter [Unknown]
  - Hypertension [Unknown]
